FAERS Safety Report 8572632-0 (Version None)
Quarter: 2012Q3

REPORT INFORMATION
  Report Type: 
  Country: None (occurrence: None)
  Receive Date: 20120806
  Receipt Date: 20120730
  Transmission Date: 20120928
  Serious: Yes (Hospitalization)
  Sender: FDA-Public Use
  Company Number: US-PURDUE-USA-2012-0090867

PATIENT
  Sex: Male
  Weight: 43.09 kg

DRUGS (2)
  1. DILAUDID [Suspect]
     Indication: PRODUCT USED FOR UNKNOWN INDICATION
     Dosage: UNK
     Dates: start: 20120501
  2. CINRYZE [Suspect]
     Indication: PROPHYLAXIS
     Dosage: 1500 UNIT, UNK
     Dates: start: 20100801, end: 20120301

REACTIONS (2)
  - DRUG HYPERSENSITIVITY [None]
  - OEDEMA PERIPHERAL [None]
